FAERS Safety Report 22228097 (Version 1)
Quarter: 2023Q2

REPORT INFORMATION
  Report Type: Spontaneous
  Country: CA (occurrence: CA)
  Receive Date: 20230419
  Receipt Date: 20230419
  Transmission Date: 20230721
  Serious: Yes (Hospitalization, Other)
  Sender: FDA-Public Use
  Company Number: CA-PFIZER INC-202300159567

PATIENT
  Age: 64 Year
  Sex: Male

DRUGS (5)
  1. BORTEZOMIB [Suspect]
     Active Substance: BORTEZOMIB
     Indication: Chemotherapy
     Dosage: UNK
     Route: 065
  2. LENALIDOMIDE [Suspect]
     Active Substance: LENALIDOMIDE
     Indication: Plasma cell myeloma
     Dosage: 5 MG, 1 EVERY 24 HOURS
     Route: 048
  3. LENALIDOMIDE [Suspect]
     Active Substance: LENALIDOMIDE
     Indication: Plasma cell myeloma
     Dosage: 2.5 MG, 1 EVERY 24 HOURS
     Route: 048
  4. CYCLOPHOSPHAMIDE [Suspect]
     Active Substance: CYCLOPHOSPHAMIDE
     Indication: Chemotherapy
     Dosage: UNK
     Route: 065
  5. DEXAMETHASONE [Suspect]
     Active Substance: DEXAMETHASONE
     Indication: Chemotherapy
     Dosage: UNK
     Route: 065

REACTIONS (17)
  - Anaemia [Unknown]
  - Clostridium difficile colitis [Unknown]
  - Dehydration [Unknown]
  - Dysphagia [Unknown]
  - Febrile neutropenia [Unknown]
  - Gingivitis [Unknown]
  - Guillain-Barre syndrome [Unknown]
  - Haematotoxicity [Unknown]
  - Neuropathy peripheral [Unknown]
  - Neutropenia [Unknown]
  - Oropharyngeal candidiasis [Unknown]
  - Pancytopenia [Unknown]
  - Periodontitis [Unknown]
  - Pneumonia [Unknown]
  - Sepsis [Unknown]
  - Thrombocytopenia [Unknown]
  - Toxicity to various agents [Unknown]
